FAERS Safety Report 24529941 (Version 3)
Quarter: 2025Q1

REPORT INFORMATION
  Report Type: Spontaneous
  Country: US (occurrence: US)
  Receive Date: 20241021
  Receipt Date: 20250122
  Transmission Date: 20250409
  Serious: Yes (Other)
  Sender: PFIZER
  Company Number: US-PFIZER INC-PV202400135343

PATIENT
  Age: 57 Year
  Sex: Female

DRUGS (1)
  1. IBRANCE [Suspect]
     Active Substance: PALBOCICLIB

REACTIONS (11)
  - Neutropenia [Unknown]
  - Nausea [Unknown]
  - Dyspepsia [Unknown]
  - Flatulence [Unknown]
  - Abdominal discomfort [Unknown]
  - Anaemia [Unknown]
  - Constipation [Unknown]
  - Fatigue [Unknown]
  - Vomiting [Unknown]
  - Brain fog [Unknown]
  - Diarrhoea [Unknown]
